FAERS Safety Report 9513234 (Version 4)
Quarter: 2014Q1

REPORT INFORMATION
  Report Type: Spontaneous
  Country: JP (occurrence: JP)
  Receive Date: 20130910
  Receipt Date: 20140120
  Transmission Date: 20141002
  Serious: Yes (Other)
  Sender: FDA-Public Use
  Company Number: JP-UCBSA-097003

PATIENT
  Age: 53 Year
  Sex: Female

DRUGS (4)
  1. E KEPPRA [Suspect]
     Indication: EPILEPSY
     Route: 048
     Dates: start: 20130711, end: 20130723
  2. EXCEGRAN [Concomitant]
     Dosage: DAILY DOSE: 400 MG
     Route: 048
     Dates: start: 201305
  3. THYRADIN-S [Concomitant]
     Dosage: DAILY DOSE: 120 MG/KG, FORM: POWDER
     Route: 048
     Dates: start: 201208
  4. LANSOPRAZOLE [Concomitant]
     Dosage: DAILY DOSE: 30 MG
     Route: 048
     Dates: start: 201208

REACTIONS (1)
  - Hepatic function abnormal [Recovering/Resolving]
